FAERS Safety Report 5937490-9 (Version None)
Quarter: 2008Q4

REPORT INFORMATION
  Report Type: 
  Country: None (occurrence: None)
  Receive Date: 20081031
  Receipt Date: 20081024
  Transmission Date: 20090506
  Serious: Yes (Other)
  Sender: FDA-Public Use
  Company Number: B0544303A

PATIENT
  Age: 73 Year
  Sex: Male

DRUGS (5)
  1. AVANDIA [Suspect]
     Dosage: 4MG TWICE PER DAY
     Route: 048
     Dates: start: 20080924, end: 20081005
  2. METFORMIN HCL [Concomitant]
     Indication: DRUG USE FOR UNKNOWN INDICATION
     Dosage: 1000MG TWICE PER DAY
     Route: 048
     Dates: start: 20040101
  3. AVODART [Concomitant]
     Indication: DRUG USE FOR UNKNOWN INDICATION
     Dosage: .5MG PER DAY
     Route: 048
     Dates: start: 20000101
  4. PRAVASTATIN [Concomitant]
     Indication: DRUG USE FOR UNKNOWN INDICATION
     Dosage: 1MG PER DAY
     Route: 048
     Dates: start: 20030101
  5. PERINDOPRIL [Concomitant]
     Indication: DRUG USE FOR UNKNOWN INDICATION
     Dosage: 4MG PER DAY
     Route: 048
     Dates: start: 20080901

REACTIONS (1)
  - TRANSIENT ISCHAEMIC ATTACK [None]
